FAERS Safety Report 8393994-3 (Version None)
Quarter: 2012Q2

REPORT INFORMATION
  Report Type: 
  Country: None (occurrence: None)
  Receive Date: 20120530
  Receipt Date: 20120516
  Transmission Date: 20120825
  Serious: Yes (Other)
  Sender: FDA-Public Use
  Company Number: CN-JNJFOC-20120502910

PATIENT
  Sex: Female
  Weight: 63 kg

DRUGS (2)
  1. MICONAZOLE NITRATE [Suspect]
     Indication: TINEA PEDIS
     Route: 061
     Dates: start: 20110811, end: 20110811
  2. MICONAZOLE NITRATE [Suspect]
     Indication: TINEA INFECTION
     Route: 061
     Dates: start: 20110811, end: 20110811

REACTIONS (1)
  - ANAPHYLACTOID REACTION [None]
